FAERS Safety Report 21557501 (Version 1)
Quarter: 2022Q4

REPORT INFORMATION
  Report Type: Spontaneous
  Country: AT (occurrence: AT)
  Receive Date: 20221105
  Receipt Date: 20221105
  Transmission Date: 20230113
  Serious: Yes (Death, Other)
  Sender: FDA-Public Use
  Company Number: None

PATIENT
  Sex: Male

DRUGS (18)
  1. GEMCITABINE [Suspect]
     Active Substance: GEMCITABINE
     Indication: Lung neoplasm malignant
     Dosage: UNK
     Dates: start: 20220506
  2. METAMIZOLE [Concomitant]
     Active Substance: METAMIZOLE
     Indication: Product used for unknown indication
     Dosage: DROPS, 30-30-30-30
  3. PASPERTIN [Concomitant]
     Indication: Prophylaxis of nausea and vomiting
     Dosage: UNK, QID (0-0-0-0 IN CASE OF NAUSEA)
  4. GABAPENTIN [Concomitant]
     Active Substance: GABAPENTIN
     Indication: Product used for unknown indication
     Dosage: UNK, TID (1-1-1-0)
  5. KETANEST [Concomitant]
     Indication: Product used for unknown indication
     Dosage: 500 MG (0-0-0-0)
  6. ZOFRAN [Concomitant]
     Active Substance: ONDANSETRON HYDROCHLORIDE
     Indication: Prophylaxis of nausea and vomiting
     Dosage: UNK, Q8H (0-0-0-0 IN CASE OF NAUSEA)
     Route: 048
  7. NAPROXEN [Concomitant]
     Active Substance: NAPROXEN
     Indication: Product used for unknown indication
     Dosage: UNK, BID (1-0-1-0)
  8. MORPHINE [Concomitant]
     Active Substance: MORPHINE
     Indication: Product used for unknown indication
     Dosage: 10 MG, QH (1000 MG, 0-0-0-0 10 MG / HOUR, BOLU 3MG EVERY 60)
  9. FOLIC ACID [Concomitant]
     Active Substance: FOLIC ACID
     Indication: Product used for unknown indication
     Dosage: UNK, QD (1-0-0-0)
     Route: 048
  10. MIDAZOLAM [Concomitant]
     Active Substance: MIDAZOLAM
     Indication: Product used for unknown indication
     Dosage: 80 MG (0-0-0-0)
  11. GUTTALAX [Concomitant]
     Indication: Constipation prophylaxis
     Dosage: 20 DRP, QD (DROPS, 0-0-0-0, IN THE EVENING)
  12. FENTANYL CITRATE [Concomitant]
     Active Substance: FENTANYL CITRATE
     Indication: Pain prophylaxis
     Dosage: UNK (BT, IN CASE OF PAIN)
  13. DEXAMETHASONE [Concomitant]
     Active Substance: DEXAMETHASONE
     Indication: Product used for unknown indication
     Dosage: UNK, 1-0-1-0
     Route: 048
  14. PANTOPRAZOLE SODIUM [Concomitant]
     Active Substance: PANTOPRAZOLE SODIUM
     Indication: Product used for unknown indication
     Dosage: UNK, QD (1-0-0-0)
  15. CEOLAT [Concomitant]
     Indication: Nausea
     Dosage: 10 ML (SOLUTION,0-0-0-0 IN CASE OF NAUSEA)
  16. NITRAZEPAM [Concomitant]
     Active Substance: NITRAZEPAM
     Indication: Product used for unknown indication
     Dosage: UNK, QD (0-0-0-1/2)
     Route: 048
  17. POLYETHYLENE GLYCOL 3350\POTASSIUM CHLORIDE\SODIUM BICARBONATE\SODIUM [Concomitant]
     Active Substance: POLYETHYLENE GLYCOL 3350\POTASSIUM CHLORIDE\SODIUM BICARBONATE\SODIUM CHLORIDE
     Indication: Product used for unknown indication
     Dosage: IN THE MORNING 1 (POWDER)
  18. LIDOCAINE [Concomitant]
     Active Substance: LIDOCAINE
     Indication: Product used for unknown indication
     Dosage: UNK (ACTIVE SUBSTANCE CONTAINING PLASTER; START AT 20:00: END AT 8:00)

REACTIONS (3)
  - Death [Fatal]
  - Malignant neoplasm progression [Unknown]
  - Lung neoplasm malignant [Unknown]

NARRATIVE: CASE EVENT DATE: 20220701
